FAERS Safety Report 6269035-0 (Version None)
Quarter: 2009Q3

REPORT INFORMATION
  Report Type: 
  Country: None (occurrence: None)
  Receive Date: 20090715
  Receipt Date: 20090706
  Transmission Date: 20100115
  Serious: Yes (Hospitalization)
  Sender: FDA-Public Use
  Company Number: B0580523A

PATIENT
  Sex: Male

DRUGS (3)
  1. CLAVAMOX [Suspect]
     Indication: OTITIS MEDIA
     Route: 048
     Dates: start: 20090524, end: 20090620
  2. TARIVID [Concomitant]
     Indication: OTITIS MEDIA
     Dosage: 6DROP PER DAY
     Route: 001
     Dates: start: 20090616
  3. MEIACT [Concomitant]

REACTIONS (4)
  - BRONCHITIS [None]
  - DRUG ERUPTION [None]
  - GENERALISED ERYTHEMA [None]
  - RASH [None]
